FAERS Safety Report 5901371-7 (Version None)
Quarter: 2008Q3

REPORT INFORMATION
  Report Type: 
  Country: None (occurrence: None)
  Receive Date: 20080925
  Receipt Date: 20080903
  Transmission Date: 20090109
  Serious: Yes (Hospitalization)
  Sender: FDA-Public Use
  Company Number: 2008SP016109

PATIENT
  Age: 50 Year
  Sex: Male
  Weight: 83 kg

DRUGS (7)
  1. TEMODAL [Suspect]
     Indication: GLIOBLASTOMA
     Dosage: 300 MG;QD;PO
     Route: 048
     Dates: start: 20080527
  2. DOXORUBICIN HCL [Suspect]
     Indication: GLIOBLASTOMA
     Dosage: 80 MG;QD;INBO
     Dates: start: 20080527
  3. DEXAMETHASONE [Concomitant]
  4. DEXAMETHASONE [Concomitant]
  5. COUMADIN [Concomitant]
  6. NEXIUM [Concomitant]
  7. MYLANTA [Concomitant]

REACTIONS (7)
  - ATRIAL FIBRILLATION [None]
  - CHEST DISCOMFORT [None]
  - DYSPNOEA [None]
  - GENERAL PHYSICAL HEALTH DETERIORATION [None]
  - PALMAR-PLANTAR ERYTHRODYSAESTHESIA SYNDROME [None]
  - PALPITATIONS [None]
  - TREMOR [None]
